FAERS Safety Report 7865049 (Version 14)
Quarter: 2015Q4

REPORT INFORMATION
  Report Type: Spontaneous
  Country: US (occurrence: US)
  Receive Date: 20110321
  Receipt Date: 20151127
  Transmission Date: 20160305
  Serious: Yes (Hospitalization, Other)
  Sender: FDA-Public Use
  Company Number: US-ASTRAZENECA-2011SE13831

PATIENT
  Age: 68 Year
  Sex: Female
  Weight: 59.9 kg

DRUGS (20)
  1. ATACAND HCT [Suspect]
     Active Substance: CANDESARTAN CILEXETIL\HYDROCHLOROTHIAZIDE
     Indication: RENAL IMPAIRMENT
     Dosage: GENERIC
     Route: 048
     Dates: start: 201503
  2. PRILOSEC [Suspect]
     Active Substance: OMEPRAZOLE MAGNESIUM
     Route: 048
  3. METFORMIN [Suspect]
     Active Substance: METFORMIN HYDROCHLORIDE
     Indication: DIABETES MELLITUS
     Dosage: NON AZ PRODUCT
     Route: 065
  4. ACIPHEX [Suspect]
     Active Substance: RABEPRAZOLE SODIUM
     Route: 065
  5. GLUCOPHAGE [Concomitant]
     Active Substance: METFORMIN HYDROCHLORIDE
     Indication: DIABETES MELLITUS
     Route: 048
     Dates: start: 2009
  6. ATACAND HCT [Suspect]
     Active Substance: CANDESARTAN CILEXETIL\HYDROCHLOROTHIAZIDE
     Indication: HYPERTENSION
     Dosage: 36-25 MG ORAL ONCE A DAY
     Route: 048
     Dates: start: 2005, end: 201503
  7. ATACAND HCT [Suspect]
     Active Substance: CANDESARTAN CILEXETIL\HYDROCHLOROTHIAZIDE
     Indication: RENAL IMPAIRMENT
     Dosage: 16/12.5 MG EVERY DAY
     Route: 048
  8. METFORMIN [Suspect]
     Active Substance: METFORMIN HYDROCHLORIDE
     Indication: DIABETES MELLITUS
     Dosage: GLUCOPHAGE, 2.5 MG DAILY
     Route: 048
  9. SYNTHROID [Concomitant]
     Active Substance: LEVOTHYROXINE SODIUM
     Indication: THYROIDECTOMY
     Dates: start: 1968
  10. GLYBURIDE. [Concomitant]
     Active Substance: GLYBURIDE
     Route: 048
  11. ATACAND HCT [Suspect]
     Active Substance: CANDESARTAN CILEXETIL\HYDROCHLOROTHIAZIDE
     Indication: HYPERTENSION
     Dosage: 32/25 MG, ONE TABLET EVERY MORNING
     Route: 048
     Dates: start: 2000, end: 201502
  12. ATACAND HCT [Suspect]
     Active Substance: CANDESARTAN CILEXETIL\HYDROCHLOROTHIAZIDE
     Indication: RENAL IMPAIRMENT
     Dosage: 32/25 MG, ONE TABLET EVERY MORNING
     Route: 048
     Dates: start: 2000, end: 201502
  13. ATACAND HCT [Suspect]
     Active Substance: CANDESARTAN CILEXETIL\HYDROCHLOROTHIAZIDE
     Indication: HYPERTENSION
     Dosage: 16/12.5 MG EVERY DAY
     Route: 048
  14. ATACAND HCT [Suspect]
     Active Substance: CANDESARTAN CILEXETIL\HYDROCHLOROTHIAZIDE
     Indication: HYPERTENSION
     Dosage: GENERIC
     Route: 048
     Dates: start: 201503
  15. NEXIUM [Suspect]
     Active Substance: ESOMEPRAZOLE MAGNESIUM
     Route: 048
  16. ATACAND [Suspect]
     Active Substance: CANDESARTAN CILEXETIL
     Indication: HYPERTENSION
     Route: 048
  17. VITAMINS NOS [Concomitant]
     Active Substance: VITAMINS
     Indication: INFLUENZA
     Dosage: PRN
     Route: 048
  18. CARAFATE [Concomitant]
     Active Substance: SUCRALFATE
     Indication: GASTRIC ULCER
     Route: 048
     Dates: start: 2013
  19. ATACAND HCT [Suspect]
     Active Substance: CANDESARTAN CILEXETIL\HYDROCHLOROTHIAZIDE
     Indication: RENAL IMPAIRMENT
     Dosage: 36-25 MG ORAL ONCE A DAY
     Route: 048
     Dates: start: 2005, end: 201503
  20. OCCUVITE [Concomitant]
     Indication: CATARACT
     Dosage: DAILY
     Route: 048

REACTIONS (28)
  - Recurrent cancer [Unknown]
  - Diabetic foot [Unknown]
  - Throat tightness [Unknown]
  - Headache [Unknown]
  - Gastric ulcer haemorrhage [Unknown]
  - Tonsil cancer [Unknown]
  - Hypertension [Unknown]
  - Amnesia [Unknown]
  - Weight increased [Unknown]
  - Dermatitis allergic [Unknown]
  - Gastrooesophageal reflux disease [Unknown]
  - Loss of consciousness [Unknown]
  - Drug hypersensitivity [Unknown]
  - Gastric ulcer [Unknown]
  - Vomiting [Unknown]
  - Product use issue [Unknown]
  - Abdominal discomfort [Unknown]
  - Drug dose omission [Not Recovered/Not Resolved]
  - Throat cancer [Unknown]
  - Cataract [Unknown]
  - Pyrexia [Unknown]
  - Renal impairment [Unknown]
  - Malnutrition [Unknown]
  - Diabetes mellitus [Unknown]
  - Dysphonia [Unknown]
  - Dysphagia [Unknown]
  - Oropharyngeal pain [Unknown]
  - Reaction to drug excipients [Unknown]

NARRATIVE: CASE EVENT DATE: 2000
